FAERS Safety Report 24446680 (Version 2)
Quarter: 2024Q4

REPORT INFORMATION
  Report Type: Spontaneous
  Country: US (occurrence: US)
  Receive Date: 20241016
  Receipt Date: 20241016
  Transmission Date: 20250114
  Serious: Yes (Other)
  Sender: ROCHE
  Company Number: US-ROCHE-10000104953

PATIENT
  Age: 36 Year
  Sex: Male

DRUGS (1)
  1. TENECTEPLASE [Suspect]
     Active Substance: TENECTEPLASE
     Indication: Ischaemic stroke
     Route: 065

REACTIONS (2)
  - Angioedema [Unknown]
  - Off label use [Unknown]
